FAERS Safety Report 9457719 (Version 1)
Quarter: 2013Q3

REPORT INFORMATION
  Report Type: Spontaneous
  Country: US (occurrence: None)
  Receive Date: 20130809
  Receipt Date: 20130809
  Transmission Date: 20140515
  Serious: Yes (Other)
  Sender: FDA-Public Use
  Company Number: 2013P1015086

PATIENT
  Age: 59 Year
  Sex: Male

DRUGS (7)
  1. GEMFIBROZIL [Suspect]
     Dates: start: 200607, end: 201108
  2. ATORVASTATIN [Suspect]
     Indication: ACUTE MYOCARDIAL INFARCTION
     Dates: start: 200604, end: 201108
  3. OMEPRAZOLE [Suspect]
     Indication: GASTROOESOPHAGEAL REFLUX DISEASE
     Dates: start: 201009, end: 201108
  4. AMLODIPINE [Concomitant]
  5. ASPIRIN [Concomitant]
  6. NITRATE [Concomitant]
  7. METOPROLOL [Concomitant]

REACTIONS (7)
  - Asthenia [None]
  - Myalgia [None]
  - Polymyositis [None]
  - Rhabdomyolysis [None]
  - Inflammation [None]
  - Neuropathy peripheral [None]
  - Muscular weakness [None]
